FAERS Safety Report 12287356 (Version 5)
Quarter: 2016Q2

REPORT INFORMATION
  Report Type: Report from Study
  Country: US (occurrence: US)
  Receive Date: 20160420
  Receipt Date: 20160613
  Transmission Date: 20160815
  Serious: Yes (Hospitalization, Other)
  Sender: FDA-Public Use
  Company Number: US-JNJFOC-20160418123

PATIENT
  Age: 84 Year
  Sex: Male

DRUGS (12)
  1. IMBRUVICA [Suspect]
     Active Substance: IBRUTINIB
     Indication: B-CELL SMALL LYMPHOCYTIC LYMPHOMA
     Route: 048
     Dates: start: 20151024
  2. ALLOPURINOL. [Concomitant]
     Active Substance: ALLOPURINOL
  3. ACETAMINOPHEN. [Concomitant]
     Active Substance: ACETAMINOPHEN
     Indication: PAIN
     Dosage: AS NEEDED
  4. CALCITRIOL. [Concomitant]
     Active Substance: CALCITRIOL
     Dosage: EVERY MONDAY
  5. FISH OIL [Concomitant]
     Active Substance: FISH OIL
  6. POTASSIUM CHLORIDE. [Concomitant]
     Active Substance: POTASSIUM CHLORIDE
  7. SIMVASTATIN. [Concomitant]
     Active Substance: SIMVASTATIN
  8. IMBRUVICA [Suspect]
     Active Substance: IBRUTINIB
     Indication: CHRONIC LYMPHOCYTIC LEUKAEMIA
     Route: 048
     Dates: start: 20151024
  9. PROCHLORPERAZINE. [Concomitant]
     Active Substance: PROCHLORPERAZINE
     Indication: NAUSEA
  10. VITAMIN D2 [Concomitant]
     Active Substance: ERGOCALCIFEROL
  11. METOPROLOL TARTRATE. [Concomitant]
     Active Substance: METOPROLOL TARTRATE
  12. TERAZOSIN [Concomitant]
     Active Substance: TERAZOSIN\TERAZOSIN HYDROCHLORIDE

REACTIONS (13)
  - Fluid overload [Recovering/Resolving]
  - Pneumonia [Recovering/Resolving]
  - Scrotal ulcer [Unknown]
  - Asthenia [Recovering/Resolving]
  - Contusion [Unknown]
  - Fall [Unknown]
  - Penile oedema [Unknown]
  - Acute respiratory failure [Recovering/Resolving]
  - Acute kidney injury [Unknown]
  - Sepsis [Recovered/Resolved]
  - Gastroenteritis cryptosporidial [Recovering/Resolving]
  - Atrial fibrillation [Recovering/Resolving]
  - Scrotal oedema [Unknown]

NARRATIVE: CASE EVENT DATE: 2016
